FAERS Safety Report 9165700 (Version 2)
Quarter: 2013Q2

REPORT INFORMATION
  Report Type: Spontaneous
  Country: GB (occurrence: GB)
  Receive Date: 20130315
  Receipt Date: 20130403
  Transmission Date: 20140414
  Serious: Yes (Other)
  Sender: FDA-Public Use
  Company Number: PHFR2013GB000869

PATIENT
  Age: 44 Year
  Sex: Female

DRUGS (1)
  1. GILENYA [Suspect]
     Indication: MULTIPLE SCLEROSIS
     Dosage: 0.5 MG, DAILY
     Route: 048
     Dates: start: 20130125

REACTIONS (4)
  - Electrocardiogram ST segment abnormal [Unknown]
  - Blood pressure systolic increased [Unknown]
  - Ventricular extrasystoles [Recovered/Resolved]
  - Sinus bradycardia [Recovered/Resolved]
